FAERS Safety Report 8482441-9 (Version None)
Quarter: 2012Q3

REPORT INFORMATION
  Report Type: 
  Country: None (occurrence: None)
  Receive Date: 20120702
  Receipt Date: 20120622
  Transmission Date: 20120928
  Serious: Yes (Hospitalization, Disabling)
  Sender: FDA-Public Use
  Company Number: US-GLAXOSMITHKLINE-A0982928A

PATIENT
  Age: 60 Year
  Sex: Male
  Weight: 95.5 kg

DRUGS (4)
  1. ZOCOR [Concomitant]
  2. AVANDIA [Suspect]
     Indication: DIABETES MELLITUS
     Dosage: 4MG TWICE PER DAY
     Route: 048
  3. BENICAR [Concomitant]
  4. GLUCOTROL XL [Concomitant]

REACTIONS (5)
  - CORONARY ARTERY DISEASE [None]
  - AORTIC STENOSIS [None]
  - CEREBROVASCULAR ACCIDENT [None]
  - ACUTE CORONARY SYNDROME [None]
  - MYOCARDIAL INFARCTION [None]
